FAERS Safety Report 23000556 (Version 3)
Quarter: 2023Q4

REPORT INFORMATION
  Report Type: Spontaneous
  Country: US (occurrence: US)
  Receive Date: 20230928
  Receipt Date: 20231108
  Transmission Date: 20240110
  Serious: No
  Sender: FDA-Public Use
  Company Number: US-PFIZER INC-202300294932

PATIENT
  Age: 15 Year
  Sex: Male
  Weight: 38.549 kg

DRUGS (2)
  1. GENOTROPIN [Suspect]
     Active Substance: SOMATROPIN
     Indication: Blood growth hormone
     Dosage: 1 MG, 1X/DAY, (ONCE A DAY)
     Dates: start: 202308
  2. REMICADE [Concomitant]
     Active Substance: INFLIXIMAB
     Indication: Crohn^s disease
     Dosage: UNK, (HE TAKES REMICADE EVERY 6 WEEK)

REACTIONS (2)
  - Drug dose omission by device [Unknown]
  - Device leakage [Unknown]
